FAERS Safety Report 11292066 (Version 1)
Quarter: 2015Q3

REPORT INFORMATION
  Report Type: Spontaneous
  Country: US (occurrence: US)
  Receive Date: 20150722
  Receipt Date: 20150722
  Transmission Date: 20151125
  Serious: No
  Sender: FDA-Public Use
  Company Number: US-BAYER-2015-382892

PATIENT
  Age: 69 Year
  Sex: Female

DRUGS (1)
  1. CLIMARA [Suspect]
     Active Substance: ESTRADIOL
     Indication: HORMONE REPLACEMENT THERAPY
     Dosage: DAILY DOSE .1 MG
     Route: 062
     Dates: start: 1973, end: 201507

REACTIONS (1)
  - Application site pain [None]

NARRATIVE: CASE EVENT DATE: 201507
